FAERS Safety Report 14616318 (Version 4)
Quarter: 2018Q4

REPORT INFORMATION
  Report Type: Spontaneous
  Country: US (occurrence: US)
  Receive Date: 20180309
  Receipt Date: 20181005
  Transmission Date: 20190204
  Serious: No
  Sender: FDA-Public Use
  Company Number: US-PFIZER INC-2018095769

PATIENT
  Age: 79 Year
  Sex: Female

DRUGS (1)
  1. XELJANZ [Suspect]
     Active Substance: TOFACITINIB CITRATE
     Dosage: 5 MG, UNK
     Dates: start: 201802

REACTIONS (7)
  - Malaise [Unknown]
  - Nasopharyngitis [Unknown]
  - Cystitis [Not Recovered/Not Resolved]
  - Nasal congestion [Unknown]
  - Upper respiratory tract infection [Unknown]
  - Localised infection [Recovered/Resolved]
  - Respiratory tract congestion [Unknown]

NARRATIVE: CASE EVENT DATE: 2018
